FAERS Safety Report 6780149-9 (Version None)
Quarter: 2010Q2

REPORT INFORMATION
  Report Type: 
  Country: None (occurrence: None)
  Receive Date: 20100618
  Receipt Date: 20100607
  Transmission Date: 20101027
  Serious: Yes (Death, Other)
  Sender: FDA-Public Use
  Company Number: DE-WYE-H14673410

PATIENT
  Age: 84 Year
  Sex: Female

DRUGS (5)
  1. AMIODARONE [Suspect]
     Indication: ARRHYTHMIA
     Route: 048
     Dates: end: 20100314
  2. MARCUMAR [Concomitant]
  3. LEVOTHYROXINE SODIUM [Concomitant]
  4. ENALAPRIL MALEATE [Concomitant]
  5. BISOPROLOL [Concomitant]

REACTIONS (2)
  - DISSEMINATED INTRAVASCULAR COAGULATION [None]
  - HEPATORENAL SYNDROME [None]
